FAERS Safety Report 14819156 (Version 1)
Quarter: 2018Q2

REPORT INFORMATION
  Report Type: Spontaneous
  Country: FR (occurrence: FR)
  Receive Date: 20180427
  Receipt Date: 20180427
  Transmission Date: 20180711
  Serious: Yes (Other)
  Sender: FDA-Public Use
  Company Number: FR-MERCK KGAA-2046710

PATIENT
  Age: 30 Year
  Sex: Female

DRUGS (1)
  1. NOVOTHYROX [Suspect]
     Active Substance: LEVOTHYROXINE SODIUM
     Indication: THYROIDITIS
     Dates: start: 201705

REACTIONS (30)
  - Paraesthesia [Not Recovered/Not Resolved]
  - Muscle spasms [Not Recovered/Not Resolved]
  - Spontaneous haematoma [Not Recovered/Not Resolved]
  - Decreased interest [None]
  - Gamma-glutamyltransferase increased [None]
  - Spinal osteoarthritis [None]
  - Disturbance in attention [None]
  - Irritability [Not Recovered/Not Resolved]
  - Red blood cell sedimentation rate increased [None]
  - Hot flush [None]
  - Insomnia [Not Recovered/Not Resolved]
  - Blood sodium decreased [None]
  - Dizziness [Not Recovered/Not Resolved]
  - Temperature intolerance [Not Recovered/Not Resolved]
  - Fatigue [None]
  - Blood calcium decreased [None]
  - Mood swings [None]
  - Alopecia [Not Recovered/Not Resolved]
  - Arthralgia [None]
  - Asthenia [Not Recovered/Not Resolved]
  - Balance disorder [Not Recovered/Not Resolved]
  - Hirsutism [None]
  - Amnesia [None]
  - Myalgia [None]
  - Nausea [Not Recovered/Not Resolved]
  - Skin fragility [None]
  - Alanine aminotransferase increased [None]
  - Contusion [None]
  - Blood creatine phosphokinase increased [None]
  - Headache [None]

NARRATIVE: CASE EVENT DATE: 2017
